FAERS Safety Report 25858242 (Version 2)
Quarter: 2025Q4

REPORT INFORMATION
  Report Type: Spontaneous
  Country: GB (occurrence: GB)
  Receive Date: 20250929
  Receipt Date: 20251011
  Transmission Date: 20260117
  Serious: Yes (Disabling, Other)
  Sender: SANOFI AVENTIS
  Company Number: None

PATIENT
  Age: 68 Year
  Sex: Female
  Weight: 42 kg

DRUGS (3)
  1. LEFLUNOMIDE [Suspect]
     Active Substance: LEFLUNOMIDE
     Indication: Arthritis
     Dosage: 10 MG
     Dates: start: 20250606, end: 20250630
  2. NAPROXEN [Concomitant]
     Active Substance: NAPROXEN
     Indication: Arthritis
     Dosage: UNK
     Dates: start: 20220506
  3. OMEPRAZOLE [Concomitant]
     Active Substance: OMEPRAZOLE
     Dosage: UNK
     Dates: start: 20220406

REACTIONS (3)
  - Lip dry [Not Recovered/Not Resolved]
  - Oral discomfort [Unknown]
  - Taste disorder [Unknown]

NARRATIVE: CASE EVENT DATE: 20250606
